FAERS Safety Report 10181012 (Version 1)
Quarter: 2014Q2

REPORT INFORMATION
  Report Type: Spontaneous
  Country: US (occurrence: US)
  Receive Date: 20140519
  Receipt Date: 20140519
  Transmission Date: 20141212
  Serious: No
  Sender: FDA-Public Use
  Company Number: US-AMGEN INC.-USASP2014010240

PATIENT
  Age: 77 Year
  Sex: Female

DRUGS (1)
  1. PROLIA [Suspect]
     Indication: PRODUCT USED FOR UNKNOWN INDICATION
     Dosage: UNK
     Route: 065
     Dates: start: 20131104

REACTIONS (12)
  - Arthralgia [Unknown]
  - Groin pain [Unknown]
  - Gait disturbance [Unknown]
  - Peripheral swelling [Unknown]
  - Discomfort [Unknown]
  - Insomnia [Unknown]
  - Mobility decreased [Unknown]
  - Hypoaesthesia [Not Recovered/Not Resolved]
  - Skin lesion [Unknown]
  - Injection site discharge [Unknown]
  - Urinary tract infection [Unknown]
  - Pain in extremity [Unknown]
